FAERS Safety Report 6694569-4 (Version None)
Quarter: 2010Q2

REPORT INFORMATION
  Report Type: 
  Country: None (occurrence: None)
  Receive Date: 20100423
  Receipt Date: 20100415
  Transmission Date: 20101027
  Serious: Yes (Hospitalization, Other)
  Sender: FDA-Public Use
  Company Number: US-MERCK-0708USA03338

PATIENT
  Age: 47 Year
  Sex: Female

DRUGS (4)
  1. FOSAMAX [Suspect]
     Indication: OSTEOPENIA
     Route: 048
     Dates: start: 20010601, end: 20030601
  2. FOSAMAX [Suspect]
     Route: 065
     Dates: start: 20010101, end: 20030101
  3. FOSAMAX [Suspect]
     Route: 048
     Dates: start: 20040201, end: 20040311
  4. CALCIUM (UNSPECIFIED) AND VITAMIN D (UNSPECIFIED) [Concomitant]
     Indication: OSTEOPENIA
     Route: 065

REACTIONS (34)
  - APHTHOUS STOMATITIS [None]
  - ARTHRITIS [None]
  - CANDIDIASIS [None]
  - CARPAL TUNNEL SYNDROME [None]
  - DENTAL CARIES [None]
  - DRUG HYPERSENSITIVITY [None]
  - DRUG INTOLERANCE [None]
  - EPISTAXIS [None]
  - FUNGAL SKIN INFECTION [None]
  - GASTROOESOPHAGEAL REFLUX DISEASE [None]
  - GINGIVAL ABSCESS [None]
  - HYPERSENSITIVITY [None]
  - IMPAIRED HEALING [None]
  - INFLAMMATION [None]
  - IRON DEFICIENCY ANAEMIA [None]
  - MOUTH ULCERATION [None]
  - MUSCULOSKELETAL STIFFNESS [None]
  - NASOPHARYNGITIS [None]
  - OSTEOARTHRITIS [None]
  - OSTEOMYELITIS [None]
  - OSTEONECROSIS [None]
  - PAIN [None]
  - PARANASAL SINUS HYPERSECRETION [None]
  - POSTMENOPAUSE [None]
  - RAYNAUD'S PHENOMENON [None]
  - RHEUMATOID ARTHRITIS [None]
  - SINUS CONGESTION [None]
  - SINUSITIS [None]
  - SKIN EXFOLIATION [None]
  - TOOTH FRACTURE [None]
  - TOOTH LOSS [None]
  - TOOTHACHE [None]
  - TYPE 2 DIABETES MELLITUS [None]
  - UTERINE DISORDER [None]
